FAERS Safety Report 25208183 (Version 1)
Quarter: 2025Q2

REPORT INFORMATION
  Report Type: Spontaneous
  Country: US (occurrence: US)
  Receive Date: 20250417
  Receipt Date: 20250417
  Transmission Date: 20250717
  Serious: No
  Sender: CALLIDITAS THERAPEUTICS
  Company Number: US-Calliditas-2025CAL00998

PATIENT
  Age: 42 Year
  Sex: Female

DRUGS (8)
  1. TARPEYO [Suspect]
     Active Substance: BUDESONIDE
     Indication: IgA nephropathy
     Route: 048
     Dates: start: 20241116
  2. ATORVASTATIN [Concomitant]
     Active Substance: ATORVASTATIN
  3. FLAXSEED [Concomitant]
     Active Substance: FLAX SEED
  4. JARDIANCE [Concomitant]
     Active Substance: EMPAGLIFLOZIN
  5. LOSARTAN [Concomitant]
     Active Substance: LOSARTAN
  6. OZEMPIC [Concomitant]
     Active Substance: SEMAGLUTIDE
  7. SPIRONOLACTONE [Concomitant]
     Active Substance: SPIRONOLACTONE
  8. VITAMIN D3 [Concomitant]
     Active Substance: CHOLECALCIFEROL

REACTIONS (4)
  - Insomnia [Unknown]
  - Swelling [Unknown]
  - Fluid retention [Unknown]
  - Increased tendency to bruise [Unknown]
